FAERS Safety Report 18183840 (Version 9)
Quarter: 2020Q4

REPORT INFORMATION
  Report Type: Spontaneous
  Country: US (occurrence: US)
  Receive Date: 20200823
  Receipt Date: 20201014
  Transmission Date: 20210113
  Serious: Yes (Other)
  Sender: FDA-Public Use
  Company Number: US-GLAXOSMITHKLINE-US2020AMR167209

PATIENT
  Sex: Female

DRUGS (2)
  1. ZEJULA [Suspect]
     Active Substance: NIRAPARIB
     Indication: FALLOPIAN TUBE CANCER
     Dosage: 200 MG, QD
     Route: 048
     Dates: start: 20200808
  2. ZEJULA [Suspect]
     Active Substance: NIRAPARIB
     Dosage: 200 MG, QD
     Route: 048
     Dates: start: 20200810, end: 202009

REACTIONS (34)
  - Cough [Unknown]
  - Gastrointestinal disorder [Unknown]
  - Carbohydrate antigen 125 increased [Not Recovered/Not Resolved]
  - Product dose omission issue [Unknown]
  - Recurrent cancer [Unknown]
  - Insomnia [Recovered/Resolved]
  - Nausea [Recovered/Resolved]
  - Vomiting [Unknown]
  - Upper-airway cough syndrome [Unknown]
  - Aspiration pleural cavity [Unknown]
  - Blood pressure increased [Not Recovered/Not Resolved]
  - Fatigue [Recovering/Resolving]
  - Presyncope [Unknown]
  - Asthenia [Recovering/Resolving]
  - Constipation [Recovering/Resolving]
  - Off label use [Unknown]
  - Pruritus [Unknown]
  - Headache [Unknown]
  - Decreased appetite [Unknown]
  - Blister [Recovering/Resolving]
  - Ascites [Unknown]
  - Rhinorrhoea [Unknown]
  - Dermatitis contact [Unknown]
  - Sunburn [Unknown]
  - Photosensitivity reaction [Unknown]
  - Appetite disorder [Unknown]
  - Dizziness [Unknown]
  - Diarrhoea [Unknown]
  - Drug resistance [Unknown]
  - Crying [Unknown]
  - Hyperhidrosis [Unknown]
  - Nasal congestion [Unknown]
  - Platelet count decreased [Unknown]
  - Exposure to toxic agent [Unknown]
